FAERS Safety Report 5263909-5 (Version None)
Quarter: 2007Q1

REPORT INFORMATION
  Report Type: 
  Country: None (occurrence: None)
  Receive Date: 20070313
  Receipt Date: 20070226
  Transmission Date: 20070707
  Serious: Yes (Hospitalization, Other)
  Sender: FDA-Public Use
  Company Number: AU-ELI_LILLY_AND_COMPANY-AU200702000871

PATIENT
  Age: 50 Year
  Sex: Male

DRUGS (8)
  1. XIGRIS [Suspect]
     Indication: MULTI-ORGAN FAILURE
     Route: 042
     Dates: start: 20070101, end: 20070101
  2. VANCOMYCIN HYDROCHLORIDE [Concomitant]
  3. PENICILLIN G [Concomitant]
  4. CIPROFLOXACIN [Concomitant]
  5. CLINDAMYCIN [Concomitant]
  6. ANALGESICS [Concomitant]
  7. DIGOXIN [Concomitant]
  8. METHYLPREDNISOLONE 16MG TAB [Concomitant]

REACTIONS (6)
  - COLONIC POLYP [None]
  - DIABETES MELLITUS [None]
  - DISORIENTATION [None]
  - HEPATITIS CHOLESTATIC [None]
  - PYREXIA [None]
  - RENAL FAILURE [None]
